FAERS Safety Report 7766806-6 (Version None)
Quarter: 2011Q3

REPORT INFORMATION
  Report Type: 
  Country: None (occurrence: None)
  Receive Date: 20110922
  Receipt Date: 20110103
  Transmission Date: 20111222
  Serious: No
  Sender: FDA-Public Use
  Company Number: US-ASTRAZENECA-2011SE00311

PATIENT
  Age: 46 Year
  Sex: Female

DRUGS (6)
  1. SEROQUEL XR [Suspect]
     Route: 048
     Dates: start: 20040101
  2. SEROQUEL XR [Suspect]
     Indication: DEPRESSION
     Route: 048
  3. SEROQUEL XR [Suspect]
     Indication: POST-TRAUMATIC STRESS DISORDER
     Route: 048
  4. SEROQUEL XR [Suspect]
     Route: 048
     Dates: start: 20040101
  5. SEROQUEL XR [Suspect]
     Route: 048
     Dates: start: 20040101
  6. SEROQUEL XR [Suspect]
     Indication: ANXIETY
     Route: 048

REACTIONS (5)
  - OEDEMA PERIPHERAL [None]
  - WEIGHT INCREASED [None]
  - HYPERSENSITIVITY [None]
  - TRISMUS [None]
  - INCORRECT DOSE ADMINISTERED [None]
